FAERS Safety Report 5696136-8 (Version None)
Quarter: 2008Q2

REPORT INFORMATION
  Report Type: 
  Country: None (occurrence: None)
  Receive Date: 20080407
  Receipt Date: 20080331
  Transmission Date: 20081010
  Serious: Yes (Hospitalization)
  Sender: FDA-Public Use
  Company Number: US-AVENTIS-200810829US

PATIENT
  Sex: Female

DRUGS (2)
  1. LOVENOX [Suspect]
     Route: 058
     Dates: start: 20080207, end: 20080101
  2. FLUTICAZONE [Concomitant]
     Dosage: DOSE: 2 SPRAYS EACH NOSTRIL
     Dates: start: 20070814

REACTIONS (5)
  - ABDOMINAL PAIN [None]
  - DIARRHOEA [None]
  - HAEMORRHAGE [None]
  - NAUSEA [None]
  - VOMITING [None]
